FAERS Safety Report 18285314 (Version 1)
Quarter: 2020Q3

REPORT INFORMATION
  Report Type: Spontaneous
  Country: US (occurrence: US)
  Receive Date: 20200918
  Receipt Date: 20200918
  Transmission Date: 20201103
  Serious: Yes (Other)
  Sender: FDA-Public Use
  Company Number: US-TEVA-2020-US-1829085

PATIENT
  Sex: Female

DRUGS (6)
  1. MORPHINE [Suspect]
     Active Substance: MORPHINE
     Dosage: FORM OF ADMIN: EXTENDED RELEASE TABLET
     Route: 065
  2. OXYCODONE [Suspect]
     Active Substance: OXYCODONE
     Dosage: FORM OF ADMIN: IMMEDIATE?RELEASE TABLETS
     Route: 065
  3. OXYCODONE [Suspect]
     Active Substance: OXYCODONE
     Dosage: FORM OF ADMIN: CONTROLLED?RELEASE TABLETS
     Route: 065
  4. HYDROCODONE AND ACETAMINOPHEN [Suspect]
     Active Substance: ACETAMINOPHEN\HYDROCODONE
     Route: 065
  5. TRAMADOL. [Suspect]
     Active Substance: TRAMADOL
     Route: 065
  6. OXYCODONE AND ACETAMINOPHEN [Suspect]
     Active Substance: ACETAMINOPHEN\OXYCODONE HYDROCHLORIDE
     Route: 065

REACTIONS (1)
  - Drug dependence [Unknown]
